FAERS Safety Report 8964478 (Version 4)
Quarter: 2013Q2

REPORT INFORMATION
  Report Type: Report from Study
  Country: US (occurrence: US)
  Receive Date: 20121214
  Receipt Date: 20130607
  Transmission Date: 20140414
  Serious: Yes (Life-Threatening, Hospitalization)
  Sender: FDA-Public Use
  Company Number: US-AMGEN-USACT2011041319

PATIENT
  Age: 47 Year
  Sex: Female
  Weight: 70.45 kg

DRUGS (21)
  1. BLINDED DENOSUMAB [Suspect]
     Indication: BREAST CANCER
     Dosage: UNK
     Route: 058
     Dates: start: 20110608
  2. BLINDED PLACEBO [Suspect]
     Indication: BREAST CANCER
     Dosage: UNK
     Route: 058
     Dates: start: 20110608
  3. NEULASTA [Suspect]
     Indication: PROPHYLAXIS
     Dosage: 6 MG, UNK
     Route: 058
     Dates: start: 20110602
  4. NEULASTA [Suspect]
     Indication: NEUTROPENIA
  5. ADRIAMYCIN [Concomitant]
     Dosage: 112 MG, Q3WK
     Route: 042
     Dates: start: 20110601, end: 20110824
  6. CYTOXAN [Concomitant]
     Dosage: 1120 MG, Q3WK
     Route: 042
     Dates: start: 20110601, end: 20110803
  7. COMPAZINE [Concomitant]
     Dosage: 10 MG, UNK
     Route: 048
     Dates: start: 20110601, end: 20111026
  8. LEXAPRO [Concomitant]
     Dosage: 20 MG, UNK
     Route: 048
     Dates: start: 20040615
  9. ZOFRAN [Concomitant]
     Dosage: 8 MG, UNK
     Route: 048
     Dates: start: 20110601, end: 20111026
  10. BENADRYL [Concomitant]
     Dosage: 50 MG, UNK
     Route: 048
     Dates: start: 20110611, end: 20110611
  11. EMEND [Concomitant]
     Dosage: 125 MG, UNK
     Route: 048
     Dates: start: 20110601, end: 20110624
  12. XANAX [Concomitant]
     Dosage: 0.25 MG, UNK
     Route: 048
     Dates: start: 20010615
  13. SINGULAIR [Concomitant]
     Dosage: UNK
     Route: 055
     Dates: start: 20040615
  14. MELATONIN [Concomitant]
     Dosage: 5 MG, UNK
     Route: 048
     Dates: start: 20040615
  15. ALBUTEROL [Concomitant]
     Dosage: UNK
     Route: 055
     Dates: start: 19900615
  16. LEVAQUIN [Concomitant]
     Dosage: 500 MG, UNK
     Route: 048
     Dates: start: 20110608, end: 20110615
  17. ATIVAN [Concomitant]
     Dosage: 1 MG, UNK
     Route: 048
     Dates: start: 20110512, end: 20111026
  18. SANCUSO [Concomitant]
     Dosage: 3.1 MG, UNK
     Route: 062
     Dates: start: 20110512, end: 20110602
  19. VITAMIN D [Concomitant]
     Dosage: 400 MG, UNK
     Route: 048
     Dates: start: 20110608
  20. CALCIUM [Concomitant]
     Dosage: 500 MG, UNK
     Route: 048
     Dates: start: 20110608
  21. TYLENOL [Concomitant]
     Dosage: 500 MG, UNK
     Route: 048
     Dates: start: 20101011

REACTIONS (2)
  - Dehydration [Recovered/Resolved]
  - Pyrexia [Recovered/Resolved]
